FAERS Safety Report 10081279 (Version 1)
Quarter: 2014Q2

REPORT INFORMATION
  Report Type: Spontaneous
  Country: US (occurrence: US)
  Receive Date: 20140416
  Receipt Date: 20140416
  Transmission Date: 20141212
  Serious: No
  Sender: FDA-Public Use
  Company Number: US-PFIZER INC-2014102572

PATIENT
  Age: 37 Year
  Sex: Male

DRUGS (1)
  1. DETROL [Suspect]
     Indication: MICTURITION URGENCY
     Dosage: 2 MG, AS NEEDED, 2 TIMES A DAY
     Route: 048

REACTIONS (2)
  - Urinary incontinence [Unknown]
  - Drug effect incomplete [Unknown]
